FAERS Safety Report 19271924 (Version 2)
Quarter: 2021Q2

REPORT INFORMATION
  Report Type: Report from Study
  Country: AU (occurrence: AU)
  Receive Date: 20210519
  Receipt Date: 20210528
  Transmission Date: 20210717
  Serious: Yes (Hospitalization, Other)
  Sender: FDA-Public Use
  Company Number: AU-REGENERON PHARMACEUTICALS, INC.-2021-21272

PATIENT

DRUGS (5)
  1. EYLEA [Suspect]
     Active Substance: AFLIBERCEPT
     Dosage: 1 DF, ONCE
     Dates: start: 20210124, end: 20210124
  2. EYLEA [Suspect]
     Active Substance: AFLIBERCEPT
     Dosage: UNK, Q6WK, LEFT EYE
  3. WARFARIN [Concomitant]
     Active Substance: WARFARIN
     Indication: CARDIAC OPERATION
     Dosage: UNK
     Dates: start: 202012
  4. EYLEA [Suspect]
     Active Substance: AFLIBERCEPT
     Dosage: UNK
  5. EYLEA [Suspect]
     Active Substance: AFLIBERCEPT
     Indication: NEOVASCULAR AGE-RELATED MACULAR DEGENERATION
     Dosage: UNK, Q8WK
     Dates: start: 20190423

REACTIONS (5)
  - Eye haemorrhage [Unknown]
  - Inappropriate schedule of product administration [Recovered/Resolved]
  - Aortic dissection [Unknown]
  - Inappropriate schedule of product administration [Unknown]
  - Product prescribing issue [Unknown]

NARRATIVE: CASE EVENT DATE: 202012
